FAERS Safety Report 9555668 (Version 1)
Quarter: 2013Q3

REPORT INFORMATION
  Report Type: Spontaneous
  Country: PT (occurrence: PT)
  Receive Date: 20130926
  Receipt Date: 20130926
  Transmission Date: 20140515
  Serious: Yes (Other)
  Sender: FDA-Public Use
  Company Number: PHHY2013PT106040

PATIENT
  Age: 86 Year
  Sex: Male

DRUGS (2)
  1. ZOMETA [Suspect]
     Indication: PROSTATE CANCER
     Dosage: 1 DF
     Route: 042
  2. PREDNISOLONA//PREDNISOLONE [Concomitant]
     Indication: PROSTATE CANCER
     Dosage: 2.5 MG, QD

REACTIONS (1)
  - Osteonecrosis of jaw [Recovering/Resolving]
